FAERS Safety Report 9726790 (Version 1)
Quarter: 2013Q4

REPORT INFORMATION
  Report Type: Spontaneous
  Country: US (occurrence: US)
  Receive Date: 20131203
  Receipt Date: 20131203
  Transmission Date: 20140711
  Serious: No
  Sender: FDA-Public Use
  Company Number: US-NOVEN-13US006249

PATIENT
  Age: 26 Year
  Sex: Female

DRUGS (7)
  1. FENTANYL [Suspect]
     Indication: PAIN
     Dosage: 50 UG/HR, UNK
     Route: 062
     Dates: start: 20121208
  2. PERCOCET                           /00446701/ [Concomitant]
     Indication: BREAKTHROUGH PAIN
     Dosage: 10 MG, QD
     Route: 048
  3. JUNEL [Concomitant]
     Indication: CONTRACEPTION
     Route: 048
  4. LAMOTRIGINE [Concomitant]
  5. CITALOPRAM [Concomitant]
     Indication: ANTIDEPRESSANT THERAPY
     Route: 048
  6. GABAPENTIN [Concomitant]
     Indication: NEURALGIA
     Route: 048
  7. GABAPENTIN [Concomitant]
     Indication: HYPERHIDROSIS

REACTIONS (3)
  - Withdrawal syndrome [Unknown]
  - Product quality issue [Unknown]
  - Hyperhidrosis [Unknown]
